FAERS Safety Report 6067826-2 (Version None)
Quarter: 2009Q1

REPORT INFORMATION
  Report Type: 
  Country: None (occurrence: None)
  Receive Date: 20090203
  Receipt Date: 20090121
  Transmission Date: 20090719
  Serious: Yes (Other)
  Sender: FDA-Public Use
  Company Number: 230716K09USA

PATIENT
  Age: 43 Year
  Sex: Female
  Weight: 184 kg

DRUGS (10)
  1. REBIF [Suspect]
     Indication: MULTIPLE SCLEROSIS
     Dosage: 22 MCG, 3 IN 1 WEEKS, SUBCUTANEOUS, 44 MCG, 3 IN 1 WEEKS, SUBCUTANEOUS
     Route: 058
     Dates: start: 20081024, end: 20081124
  2. REBIF [Suspect]
     Indication: MULTIPLE SCLEROSIS
     Dosage: 22 MCG, 3 IN 1 WEEKS, SUBCUTANEOUS, 44 MCG, 3 IN 1 WEEKS, SUBCUTANEOUS
     Route: 058
     Dates: start: 20081204
  3. DETROL LA [Concomitant]
  4. INDERAL [Concomitant]
  5. NORTRIPTYLINE HCL [Concomitant]
  6. XANAX [Concomitant]
  7. PREVACID [Concomitant]
  8. AMBIEN [Concomitant]
  9. PROZAC [Concomitant]
  10. BUSPAR [Concomitant]

REACTIONS (4)
  - ABORTION INDUCED [None]
  - BLIGHTED OVUM [None]
  - DRUG EXPOSURE DURING PREGNANCY [None]
  - DRUG INEFFECTIVE [None]
